FAERS Safety Report 13144220 (Version 1)
Quarter: 2017Q1

REPORT INFORMATION
  Report Type: Report from Study
  Country: FR (occurrence: FR)
  Receive Date: 20170124
  Receipt Date: 20170124
  Transmission Date: 20170428
  Serious: Yes (Other)
  Sender: FDA-Public Use
  Company Number: FR-ROCHE-1881745

PATIENT
  Age: 72 Year
  Sex: Male

DRUGS (8)
  1. RANIBIZUMAB [Suspect]
     Active Substance: RANIBIZUMAB
     Indication: RETINAL VEIN OCCLUSION
     Dosage: 0.5 MG, RIGHT EYE
     Route: 031
     Dates: start: 20141204
  2. RANIBIZUMAB [Suspect]
     Active Substance: RANIBIZUMAB
     Indication: MACULAR OEDEMA
     Dosage: 0.5 MG, RIGHT EYE
     Route: 031
     Dates: start: 20141106, end: 20141106
  3. RANIBIZUMAB [Suspect]
     Active Substance: RANIBIZUMAB
     Dosage: 0.5 MG, RIGHT EYE
     Route: 031
     Dates: start: 20150108
  4. RANIBIZUMAB [Suspect]
     Active Substance: RANIBIZUMAB
     Dosage: 0.5 MG, RIGHT EYE
     Route: 031
     Dates: start: 20150810, end: 20150810
  5. RANIBIZUMAB [Suspect]
     Active Substance: RANIBIZUMAB
     Dosage: 0.5 MG, RIGHT EYE
     Route: 031
     Dates: start: 20150413
  6. RANIBIZUMAB [Suspect]
     Active Substance: RANIBIZUMAB
     Dosage: 0.5 MG, RIGHT EYE
     Route: 031
     Dates: start: 20150709
  7. RANIBIZUMAB [Suspect]
     Active Substance: RANIBIZUMAB
     Dosage: 0.5 MG, RIGHT EYE
     Route: 031
     Dates: start: 20150910, end: 20150910
  8. RANIBIZUMAB [Suspect]
     Active Substance: RANIBIZUMAB
     Dosage: 0.5 MG, RIGHT EYE
     Route: 031
     Dates: start: 20150312

REACTIONS (5)
  - Retinal oedema [Unknown]
  - Ocular hypertension [Not Recovered/Not Resolved]
  - Visual impairment [Unknown]
  - Eye pain [Recovered/Resolved]
  - Foreign body sensation in eyes [Recovered/Resolved]

NARRATIVE: CASE EVENT DATE: 20141106
